FAERS Safety Report 9550668 (Version 16)
Quarter: 2016Q1

REPORT INFORMATION
  Report Type: Report from Study
  Country: US (occurrence: US)
  Receive Date: 20130924
  Receipt Date: 20160301
  Transmission Date: 20160526
  Serious: Yes (Hospitalization)
  Sender: FDA-Public Use
  Company Number: US-SANOFI-AVENTIS-2013SA045495

PATIENT
  Age: 46 Year
  Sex: Female
  Weight: 87 kg

DRUGS (24)
  1. ZOLPIDEM [Concomitant]
     Active Substance: ZOLPIDEM\ZOLPIDEM TARTRATE
     Indication: SLEEP DISORDER
     Route: 065
  2. BETAMETHASONE. [Concomitant]
     Active Substance: BETAMETHASONE
  3. SINGULAIR [Concomitant]
     Active Substance: MONTELUKAST SODIUM
  4. XANAX [Concomitant]
     Active Substance: ALPRAZOLAM
  5. SOLU-MEDROL [Concomitant]
     Active Substance: METHYLPREDNISOLONE SODIUM SUCCINATE
     Route: 042
  6. VOLTAREN [Concomitant]
     Active Substance: DICLOFENAC SODIUM
  7. NORTRIPTYLINE [Concomitant]
     Active Substance: NORTRIPTYLINE
  8. TOBRAMYCIN. [Concomitant]
     Active Substance: TOBRAMYCIN
  9. AUBAGIO [Suspect]
     Active Substance: TERIFLUNOMIDE
     Indication: RELAPSING-REMITTING MULTIPLE SCLEROSIS
     Route: 048
     Dates: start: 201504, end: 2016
  10. PREDNISONE. [Suspect]
     Active Substance: PREDNISONE
     Indication: SINUS DISORDER
     Route: 065
  11. CIPRO [Concomitant]
     Active Substance: CIPROFLOXACIN HYDROCHLORIDE
  12. PROZAC [Concomitant]
     Active Substance: FLUOXETINE HYDROCHLORIDE
  13. SOLU-MEDROL [Concomitant]
     Active Substance: METHYLPREDNISOLONE SODIUM SUCCINATE
     Route: 042
  14. AUBAGIO [Suspect]
     Active Substance: TERIFLUNOMIDE
     Indication: RELAPSING-REMITTING MULTIPLE SCLEROSIS
     Route: 048
     Dates: start: 20130418
  15. PREDNISONE. [Suspect]
     Active Substance: PREDNISONE
     Indication: INFLAMMATION
     Route: 065
  16. PREDNISONE. [Suspect]
     Active Substance: PREDNISONE
     Indication: SINUS DISORDER
     Route: 065
     Dates: start: 2011
  17. PREDNISONE. [Suspect]
     Active Substance: PREDNISONE
     Indication: INFLAMMATION
     Route: 065
     Dates: start: 2011
  18. AMLODIPINE [Concomitant]
     Active Substance: AMLODIPINE BESYLATE
     Indication: BLOOD PRESSURE MEASUREMENT
     Route: 065
  19. TRAMADOL. [Concomitant]
     Active Substance: TRAMADOL
  20. AUBAGIO [Suspect]
     Active Substance: TERIFLUNOMIDE
     Indication: RELAPSING-REMITTING MULTIPLE SCLEROSIS
     Route: 048
     Dates: start: 20130418
  21. LEXAPRO [Concomitant]
     Active Substance: ESCITALOPRAM OXALATE
  22. BETASERON [Concomitant]
     Active Substance: INTERFERON BETA-1B
  23. LEVOFLOXACIN. [Concomitant]
     Active Substance: LEVOFLOXACIN
  24. OXYCODONE [Concomitant]
     Active Substance: OXYCODONE
     Dosage: 5-325

REACTIONS (46)
  - Ageusia [Not Recovered/Not Resolved]
  - Dizziness [Unknown]
  - Dysgraphia [Unknown]
  - Dyspnoea [Unknown]
  - Fear of falling [Unknown]
  - Anosmia [Not Recovered/Not Resolved]
  - Arthralgia [Recovered/Resolved]
  - Stress [Not Recovered/Not Resolved]
  - Thyroid function test abnormal [Unknown]
  - Respiratory rate increased [Not Recovered/Not Resolved]
  - Depressed mood [Unknown]
  - Sinusitis [Not Recovered/Not Resolved]
  - Hypersomnia [Unknown]
  - Headache [Unknown]
  - Sinus disorder [Not Recovered/Not Resolved]
  - Blindness [Recovering/Resolving]
  - Headache [Recovered/Resolved]
  - Dysgeusia [Unknown]
  - Anxiety [Unknown]
  - Sinus polyp [Unknown]
  - Hepatic enzyme increased [Not Recovered/Not Resolved]
  - Blood pressure increased [Recovered/Resolved]
  - Fall [Unknown]
  - Hypokinesia [Unknown]
  - Fatigue [Unknown]
  - Inflammation [Not Recovered/Not Resolved]
  - Multiple sclerosis relapse [Not Recovered/Not Resolved]
  - Panic attack [Unknown]
  - Condition aggravated [Unknown]
  - Insomnia [Unknown]
  - Feeling abnormal [Unknown]
  - Fine motor skill dysfunction [Recovering/Resolving]
  - Disorientation [Not Recovered/Not Resolved]
  - Ataxia [Not Recovered/Not Resolved]
  - Hypoaesthesia [Not Recovered/Not Resolved]
  - Mental disorder [Unknown]
  - Pain [Unknown]
  - Osteoarthritis [Recovered/Resolved]
  - Balance disorder [Not Recovered/Not Resolved]
  - Unevaluable event [Unknown]
  - Scleral discolouration [Not Recovered/Not Resolved]
  - Band sensation [Recovered/Resolved]
  - Activities of daily living impaired [Unknown]
  - Goitre [Unknown]
  - Burning sensation [Recovered/Resolved]
  - Balance disorder [Unknown]

NARRATIVE: CASE EVENT DATE: 20130428
